FAERS Safety Report 4488737-X (Version None)
Quarter: 2004Q4

REPORT INFORMATION
  Report Type: 
  Country: None (occurrence: None)
  Receive Date: 20041025
  Receipt Date: 20041008
  Transmission Date: 20050328
  Serious: Yes (Hospitalization)
  Sender: FDA-Public Use
  Company Number: 2004077599

PATIENT
  Age: 72 Year
  Sex: Male

DRUGS (1)
  1. CARDURA XL [Suspect]
     Indication: BENIGN PROSTATIC HYPERPLASIA
     Dosage: 4 MG (4 MG, 1 IN 1 D), ORAL
     Route: 048
     Dates: start: 20001101, end: 20040601

REACTIONS (2)
  - DRUG INEFFECTIVE [None]
  - PROSTATIC OPERATION [None]
